FAERS Safety Report 5615884-9 (Version None)
Quarter: 2008Q1

REPORT INFORMATION
  Report Type: 
  Country: None (occurrence: None)
  Receive Date: 20080201
  Receipt Date: 20080125
  Transmission Date: 20080703
  Serious: Yes (Hospitalization)
  Sender: FDA-Public Use
  Company Number: 2008AP000279

PATIENT
  Age: 22 Year
  Sex: Female

DRUGS (8)
  1. PAROXETINE HCL [Suspect]
     Dosage: 20 MG; QD, PO, 8 MG; TAB; PO; QD, 30 MG; TAB; PO; QD, TAB; PO; QOD, 20 MG; TAB; PO; QD, PO
     Route: 048
     Dates: end: 20030601
  2. PAROXETINE HCL [Suspect]
     Dosage: 20 MG; QD, PO, 8 MG; TAB; PO; QD, 30 MG; TAB; PO; QD, TAB; PO; QOD, 20 MG; TAB; PO; QD, PO
     Route: 048
     Dates: end: 20051001
  3. PAROXETINE HCL [Suspect]
     Dosage: 20 MG; QD, PO, 8 MG; TAB; PO; QD, 30 MG; TAB; PO; QD, TAB; PO; QOD, 20 MG; TAB; PO; QD, PO
     Route: 048
     Dates: start: 19971117
  4. PAROXETINE HCL [Suspect]
     Dosage: 20 MG; QD, PO, 8 MG; TAB; PO; QD, 30 MG; TAB; PO; QD, TAB; PO; QOD, 20 MG; TAB; PO; QD, PO
     Route: 048
     Dates: start: 20010901
  5. PAROXETINE HCL [Suspect]
     Dosage: 20 MG; QD, PO, 8 MG; TAB; PO; QD, 30 MG; TAB; PO; QD, TAB; PO; QOD, 20 MG; TAB; PO; QD, PO
     Route: 048
     Dates: start: 20040224
  6. CITALOPRAM HYDROBROMIDE [Concomitant]
  7. DIAZEPAM [Concomitant]
  8. FLUOXETINE HCL [Concomitant]

REACTIONS (49)
  - AFFECT LABILITY [None]
  - AGGRESSION [None]
  - ANGER [None]
  - ANTISOCIAL PERSONALITY DISORDER [None]
  - ANXIETY [None]
  - APATHY [None]
  - ASTHENIA [None]
  - BALANCE DISORDER [None]
  - CLUMSINESS [None]
  - COGNITIVE DISORDER [None]
  - CONFUSIONAL STATE [None]
  - CONVULSION [None]
  - DECREASED APPETITE [None]
  - DEPRESSED LEVEL OF CONSCIOUSNESS [None]
  - DEPRESSION [None]
  - DISTURBANCE IN ATTENTION [None]
  - DYSKINESIA [None]
  - EMOTIONAL DISTRESS [None]
  - EPISTAXIS [None]
  - EXTRAPYRAMIDAL DISORDER [None]
  - FEELING ABNORMAL [None]
  - FEELING DRUNK [None]
  - FEELING OF DESPAIR [None]
  - INFLUENZA [None]
  - INFLUENZA LIKE ILLNESS [None]
  - IRRITABILITY [None]
  - LETHARGY [None]
  - MALAISE [None]
  - MENTAL IMPAIRMENT [None]
  - MUSCLE SPASMS [None]
  - MUSCLE TWITCHING [None]
  - NAUSEA [None]
  - NIGHTMARE [None]
  - PAIN IN EXTREMITY [None]
  - PANIC REACTION [None]
  - PARAESTHESIA [None]
  - REGURGITATION [None]
  - RESTLESS LEGS SYNDROME [None]
  - RESTLESSNESS [None]
  - SLEEP DISORDER [None]
  - SUICIDAL IDEATION [None]
  - THINKING ABNORMAL [None]
  - TREMOR [None]
  - URINARY RETENTION [None]
  - VERTIGO [None]
  - VISION BLURRED [None]
  - VISUAL DISTURBANCE [None]
  - WEIGHT INCREASED [None]
  - WITHDRAWAL SYNDROME [None]
